FAERS Safety Report 6541955-9 (Version None)
Quarter: 2010Q1

REPORT INFORMATION
  Report Type: 
  Country: None (occurrence: None)
  Receive Date: 20100119
  Receipt Date: 20100108
  Transmission Date: 20100710
  Serious: Yes (Other)
  Sender: FDA-Public Use
  Company Number: JP-WYE-H12735809

PATIENT
  Age: 40 Year
  Sex: Female

DRUGS (2)
  1. PREMARIN [Suspect]
     Dosage: UNKNOWN
     Route: 048
  2. PROVERA [Concomitant]
     Dosage: UNKNOWN
     Route: 048

REACTIONS (1)
  - RETINAL VEIN OCCLUSION [None]
